FAERS Safety Report 8860780 (Version 7)
Quarter: 2013Q1

REPORT INFORMATION
  Report Type: Spontaneous
  Country: US (occurrence: US)
  Receive Date: 20121026
  Receipt Date: 20130318
  Transmission Date: 20140127
  Serious: Yes (Hospitalization, Other)
  Sender: FDA-Public Use
  Company Number: US-BIOGENIDEC-2012BI046524

PATIENT
  Age: 40 Year
  Sex: Female

DRUGS (6)
  1. AVONEX [Suspect]
     Indication: MULTIPLE SCLEROSIS
     Route: 030
     Dates: start: 20020825, end: 20090901
  2. AVONEX [Suspect]
     Indication: MULTIPLE SCLEROSIS
     Route: 030
     Dates: end: 20090901
  3. AVONEX [Suspect]
     Indication: MULTIPLE SCLEROSIS
     Route: 030
     Dates: start: 20121119, end: 20121119
  4. OXYCONTIN [Concomitant]
     Indication: SPINAL CORD INJURY
  5. MORPHINE [Concomitant]
     Indication: SPINAL CORD INJURY
  6. DURAGESIC PATCHES [Concomitant]
     Indication: SPINAL CORD INJURY

REACTIONS (9)
  - Renal failure [Not Recovered/Not Resolved]
  - Victim of sexual abuse [Recovered/Resolved]
  - Pain management [Recovered/Resolved]
  - Post-traumatic stress disorder [Recovered/Resolved]
  - Convulsion [Not Recovered/Not Resolved]
  - Optic nerve injury [Not Recovered/Not Resolved]
  - Malaise [Recovered/Resolved]
  - Influenza like illness [Recovered/Resolved]
  - Bone pain [Unknown]
